FAERS Safety Report 13054512 (Version 1)
Quarter: 2016Q4

REPORT INFORMATION
  Report Type: Spontaneous
  Country: TR (occurrence: TR)
  Receive Date: 20161222
  Receipt Date: 20161222
  Transmission Date: 20170207
  Serious: Yes (Other)
  Sender: FDA-Public Use
  Company Number: TR-TEVA-721735ISR

PATIENT
  Age: 45 Year
  Sex: Male

DRUGS (8)
  1. METHYLPREDNISOLONE. [Suspect]
     Active Substance: METHYLPREDNISOLONE
     Indication: ALVEOLITIS ALLERGIC
     Dosage: AT 6 MONTHS HE WAS ON 4 MG/DAY AGAIN RESTORED TO 0.5 MG/KG/DAY
     Route: 065
  2. METHYLPREDNISOLONE. [Suspect]
     Active Substance: METHYLPREDNISOLONE
     Indication: ALVEOLITIS ALLERGIC
     Dosage: .5 MG/KG DAILY;
     Route: 065
  3. VITAMIN D [Concomitant]
     Active Substance: CHOLECALCIFEROL
     Route: 065
  4. COLCHICINE. [Concomitant]
     Active Substance: COLCHICINE
     Indication: FAMILIAL MEDITERRANEAN FEVER
     Route: 065
  5. TIOTROPIUM BROMIDE [Concomitant]
     Active Substance: TIOTROPIUM BROMIDE
     Indication: CHRONIC OBSTRUCTIVE PULMONARY DISEASE
     Route: 065
  6. TIOTROPIUM BROMIDE [Concomitant]
     Active Substance: TIOTROPIUM BROMIDE
     Indication: BRONCHIECTASIS
  7. CALCIUM [Concomitant]
     Active Substance: CALCIUM
     Route: 048
  8. METHYLPREDNISOLONE. [Suspect]
     Active Substance: METHYLPREDNISOLONE
     Indication: ALVEOLITIS ALLERGIC
     Dosage: FOLLOWED BY TAPER TO MONTHLY DOSE
     Route: 065

REACTIONS (5)
  - Diabetes mellitus [Recovered/Resolved]
  - Osteoporosis [Recovered/Resolved]
  - Lipohypertrophy [Recovered/Resolved]
  - Cushingoid [Recovered/Resolved]
  - Weight increased [Recovered/Resolved]
